FAERS Safety Report 5232827-0 (Version None)
Quarter: 2007Q1

REPORT INFORMATION
  Report Type: 
  Country: None (occurrence: None)
  Receive Date: 20070206
  Receipt Date: 20070206
  Transmission Date: 20070707
  Serious: No
  Sender: FDA-Public Use
  Company Number: None

PATIENT
  Age: 28 Year
  Sex: Female
  Weight: 63.5036 kg

DRUGS (1)
  1. LEVAQUIN [Suspect]
     Indication: SINUSITIS
     Dosage: 500MG  TWICE A DAY PO
     Route: 048
     Dates: start: 20060216, end: 20060219

REACTIONS (2)
  - ARTHRALGIA [None]
  - GAIT DISTURBANCE [None]
